FAERS Safety Report 8938101 (Version 1)
Quarter: 2012Q4

REPORT INFORMATION
  Report Type: 
  Country: US (occurrence: US)
  Receive Date: 20121203
  Receipt Date: 20121203
  Transmission Date: 20130627
  Serious: Yes (Other)
  Sender: FDA-Public Use
  Company Number: US-PFIZER INC-2012302121

PATIENT
  Age: 86 Year
  Sex: Female
  Weight: 65.76 kg

DRUGS (4)
  1. TIKOSYN [Suspect]
     Indication: ATRIAL FIBRILLATION
     Dosage: 0.25 mg, 2x/day
  2. ACETYLSALICYLIC ACID [Concomitant]
     Indication: THROMBOSIS PROPHYLAXIS
     Dosage: 81 mg, daily
  3. TOPROL XL [Concomitant]
     Indication: CARDIAC DISORDER
     Dosage: UNK, 2x/day
  4. TOPROL XL [Concomitant]
     Indication: CARDIOVASCULAR DISORDER

REACTIONS (1)
  - Angina pectoris [Recovered/Resolved]
